FAERS Safety Report 4317496-6 (Version None)
Quarter: 2004Q1

REPORT INFORMATION
  Report Type: 
  Country: None (occurrence: None)
  Receive Date: 20040312
  Receipt Date: 20040302
  Transmission Date: 20041129
  Serious: Yes (Hospitalization)
  Sender: FDA-Public Use
  Company Number: HQWYE034017FEB04

PATIENT
  Age: 72 Year
  Sex: Female

DRUGS (7)
  1. CORDARONE [Suspect]
     Indication: ATRIAL FIBRILLATION
     Dosage: 200 MG 1X PER 1 DAY, ORAL
     Route: 048
     Dates: end: 20040101
  2. RUTIN TAB [Suspect]
  3. CETIRIZINE HCL [Concomitant]
  4. BROMAZEPAM (BROMAZEPAM) [Concomitant]
  5. AMILOIDE HCL W/HYDROCHLOROTHIAZIDE (AMILORIDE HYDROCHLORIDE/HYDROCHLOR [Concomitant]
  6. IBUPROFEN [Concomitant]
  7. ALENDRONIC ACID (ALENDRONIC ACID) [Concomitant]

REACTIONS (1)
  - RASH MACULO-PAPULAR [None]
